FAERS Safety Report 6321702-6 (Version None)
Quarter: 2009Q3

REPORT INFORMATION
  Report Type: 
  Country: None (occurrence: None)
  Receive Date: 20090821
  Receipt Date: 20090821
  Transmission Date: 20100115
  Serious: Yes (Life-Threatening, Other)
  Sender: FDA-Public Use
  Company Number: None

PATIENT
  Age: 79 Year
  Sex: Male
  Weight: 99.7913 kg

DRUGS (3)
  1. METOCLOPRAMIDE [Suspect]
     Indication: GASTRIC DISORDER
     Dosage: 10 MG QID ORAL
     Route: 048
  2. CYMBALTA [Suspect]
     Indication: NEURALGIA
     Dosage: 30 MG 2WKS DAILY ORAL
     Route: 048
  3. CYMBALTA [Suspect]
     Indication: NEURALGIA
     Dosage: 60 MG 5 DA DAILY ORAL
     Route: 048

REACTIONS (8)
  - DISCOMFORT [None]
  - DROOLING [None]
  - FACIAL PALSY [None]
  - FEELING ABNORMAL [None]
  - INCONTINENCE [None]
  - SLUGGISHNESS [None]
  - SOMNOLENCE [None]
  - TREMOR [None]
